FAERS Safety Report 8786499 (Version 1)
Quarter: 2012Q4

REPORT INFORMATION
  Report Type: 
  Country: US (occurrence: US)
  Receive Date: 20120914
  Receipt Date: 20120914
  Transmission Date: 20130627
  Serious: No
  Sender: FDA-Public Use
  Company Number: US-VERTEX PHARMACEUTICAL INC.-AE-2012-010005

PATIENT

DRUGS (17)
  1. INCIVEK [Suspect]
     Indication: HEPATITIS C
     Route: 048
  2. PEGASYS [Concomitant]
     Indication: HEPATITIS C
  3. RIBAVIRIN [Concomitant]
     Indication: HEPATITIS C
  4. ASPIRIN [Concomitant]
  5. AZOR [Concomitant]
  6. CATAPRESS [Concomitant]
  7. CATAPRESS TTS [Concomitant]
  8. CLONIDINE [Concomitant]
  9. CLONIDINE [Concomitant]
  10. COREG [Concomitant]
  11. FISH OIL [Concomitant]
  12. HYDRALAZINE [Concomitant]
  13. PLAVIX [Concomitant]
  14. RENAGEL [Concomitant]
  15. RENAX [Concomitant]
  16. SENSIPAR [Concomitant]
  17. ZINC [Concomitant]

REACTIONS (1)
  - Breast swelling [Recovered/Resolved]
